FAERS Safety Report 9157384 (Version 2)
Quarter: 2013Q1

REPORT INFORMATION
  Report Type: Spontaneous
  Country: US (occurrence: None)
  Receive Date: 20130211
  Receipt Date: 20130325
  Transmission Date: 20140127
  Serious: Yes (Death, Hospitalization)
  Sender: FDA-Public Use
  Company Number: ACO_34060_2013

PATIENT
  Age: 44 Year
  Sex: Female

DRUGS (7)
  1. AMPYRA (DALFAMPRIDINE) TABLET, 10MG [Suspect]
     Indication: GAIT DISTURBANCE
     Dates: end: 20121231
  2. TYSABRI (NATALIZUMAB) [Suspect]
     Indication: MULTIPLE SCLEROSIS
     Route: 042
     Dates: start: 200912, end: 201212
  3. TIZANIDINE (TIZANIDINE HYDROCHLORIDE) [Concomitant]
  4. GABAPENTIN (GABAPENTIN) [Concomitant]
  5. METOPROLOL (METOPROLOL) [Concomitant]
  6. EFFEXOR (VENLAFAXINE HYDROCHLORIDE) [Concomitant]
  7. ALL OTHER TERAPEUTIC PRODUCTS [Concomitant]

REACTIONS (1)
  - Progressive multifocal leukoencephalopathy [None]
